FAERS Safety Report 4299841-3 (Version None)
Quarter: 2004Q1

REPORT INFORMATION
  Report Type: 
  Country: None (occurrence: None)
  Receive Date: 20040126
  Receipt Date: 20031118
  Transmission Date: 20041129
  Serious: No
  Sender: FDA-Public Use
  Company Number: USA031152898

PATIENT
  Age: 11 Year
  Sex: Male
  Weight: 55 kg

DRUGS (4)
  1. STRATTERA [Suspect]
     Indication: ATTENTION DEFICIT/HYPERACTIVITY DISORDER
     Dosage: 80 MG/DAY
     Dates: start: 20031101
  2. CONCERTA [Concomitant]
  3. ALAVERT (LORATADINE) [Concomitant]
  4. MULTIVITAMIN [Concomitant]

REACTIONS (7)
  - DYSPEPSIA [None]
  - FATIGUE [None]
  - HEADACHE [None]
  - HYPERSOMNIA [None]
  - INFLUENZA [None]
  - PAIN [None]
  - VOMITING [None]
